FAERS Safety Report 4725994-6 (Version None)
Quarter: 2005Q3

REPORT INFORMATION
  Report Type: 
  Country: None (occurrence: None)
  Receive Date: 20050722
  Receipt Date: 20050722
  Transmission Date: 20060218
  Serious: No
  Sender: FDA-Public Use
  Company Number: None

PATIENT
  Age: 68 Year
  Sex: Female
  Weight: 50.8029 kg

DRUGS (4)
  1. IRINOTECAN [Suspect]
     Indication: PANCREATIC CARCINOMA
     Dosage: 103 MG IV WEEKLY
     Route: 042
     Dates: start: 20041022, end: 20050224
  2. MS CONTIN [Concomitant]
  3. ATIVAN [Concomitant]
  4. PHENERGAN [Concomitant]

REACTIONS (3)
  - EYE PAIN [None]
  - INFUSION RELATED REACTION [None]
  - OEDEMA PERIPHERAL [None]
